FAERS Safety Report 23559026 (Version 2)
Quarter: 2024Q2

REPORT INFORMATION
  Report Type: Spontaneous
  Country: US (occurrence: US)
  Receive Date: 20240223
  Receipt Date: 20240524
  Transmission Date: 20240716
  Serious: No
  Sender: FDA-Public Use
  Company Number: US-MIMS-BCONMC-2426

PATIENT

DRUGS (1)
  1. INSULIN GLARGINE [Suspect]
     Active Substance: INSULIN GLARGINE
     Indication: Type 2 diabetes mellitus
     Dosage: 35 UNITS/ML, QD (30 UNITS AT NIGHT, AND 5 UNITS AT MIDMORNING)
     Route: 058
     Dates: start: 20231024

REACTIONS (1)
  - Device mechanical issue [Unknown]
